FAERS Safety Report 16794921 (Version 3)
Quarter: 2019Q3

REPORT INFORMATION
  Report Type: Spontaneous
  Country: US (occurrence: US)
  Receive Date: 20190911
  Receipt Date: 20190925
  Transmission Date: 20191005
  Serious: No
  Sender: FDA-Public Use
  Company Number: US-PFIZER INC-2019179902

PATIENT
  Age: 60 Year
  Sex: Male

DRUGS (1)
  1. LYRICA [Suspect]
     Active Substance: PREGABALIN
     Dosage: 800 MG, DAILY (LYRICA 200 MG CAPSULE / QTY 120 / DAYS SUPPLY 30)

REACTIONS (2)
  - Malaise [Unknown]
  - Prescribed overdose [Unknown]
